FAERS Safety Report 25409573 (Version 1)
Quarter: 2025Q2

REPORT INFORMATION
  Report Type: Spontaneous
  Country: US (occurrence: US)
  Receive Date: 20250607
  Receipt Date: 20250607
  Transmission Date: 20250717
  Serious: No
  Sender: RIGEL PHARMACEUTICALS
  Company Number: US-RIGEL Pharmaceuticals, INC-20240700079

PATIENT
  Sex: Male
  Weight: 86.183 kg

DRUGS (13)
  1. TAVALISSE [Suspect]
     Active Substance: FOSTAMATINIB
     Indication: Immune thrombocytopenia
     Dosage: 150 MG, BID
     Route: 048
     Dates: start: 20240328
  2. TAVALISSE [Suspect]
     Active Substance: FOSTAMATINIB
     Dosage: 100 MG, BID
     Route: 048
     Dates: start: 20240213, end: 20240328
  3. ACETAMINOPHEN\ASCORBIC ACID [Concomitant]
     Active Substance: ACETAMINOPHEN\ASCORBIC ACID
     Indication: Product used for unknown indication
     Route: 048
  4. CARVEDILOL [Concomitant]
     Active Substance: CARVEDILOL
     Indication: Product used for unknown indication
     Dosage: 6.25 MG, BID
     Route: 048
  5. DEXAMETHASONE [Concomitant]
     Active Substance: DEXAMETHASONE
     Indication: Product used for unknown indication
     Route: 048
  6. DOPTELET [Concomitant]
     Active Substance: AVATROMBOPAG MALEATE
     Indication: Product used for unknown indication
     Route: 048
  7. NITROGLYCERIN [Concomitant]
     Active Substance: NITROGLYCERIN
     Indication: Product used for unknown indication
     Route: 060
  8. NPLATE [Concomitant]
     Active Substance: ROMIPLOSTIM
     Indication: Product used for unknown indication
     Route: 058
  9. PANTOPRAZOLE [Concomitant]
     Active Substance: PANTOPRAZOLE
     Indication: Product used for unknown indication
     Dosage: 40 MG, QD
     Route: 048
  10. RANOLAZINE [Concomitant]
     Active Substance: RANOLAZINE
     Indication: Product used for unknown indication
     Route: 048
  11. REPATHA [Concomitant]
     Active Substance: EVOLOCUMAB
     Indication: Product used for unknown indication
     Route: 058
  12. TAMSULOSIN [Concomitant]
     Active Substance: TAMSULOSIN
     Indication: Product used for unknown indication
     Dosage: 0.4 MG, QD
     Route: 048
  13. VITAMIN B12 [Concomitant]
     Active Substance: CYANOCOBALAMIN
     Indication: Product used for unknown indication
     Dosage: 100 MCG, QD
     Route: 048

REACTIONS (1)
  - Urinary tract infection [Unknown]

NARRATIVE: CASE EVENT DATE: 20240101
